FAERS Safety Report 5155189-6 (Version None)
Quarter: 2006Q4

REPORT INFORMATION
  Report Type: 
  Country: None (occurrence: None)
  Receive Date: 20061121
  Receipt Date: 20061112
  Transmission Date: 20070319
  Serious: Yes (Hospitalization)
  Sender: FDA-Public Use
  Company Number: DE-JNJFOC-20061103248

PATIENT
  Sex: Female
  Weight: 40 kg

DRUGS (4)
  1. REMINYL [Suspect]
     Indication: DEMENTIA
     Route: 048
  2. EUNERPAN [Suspect]
     Indication: AGITATION
     Route: 048
  3. VALORON N RETARD [Concomitant]
     Indication: OSTEOPOROSIS
  4. NOVAMINSULFON [Concomitant]
     Indication: PAIN
     Route: 048

REACTIONS (1)
  - CIRCULATORY COLLAPSE [None]
